FAERS Safety Report 25037448 (Version 1)
Quarter: 2025Q1

REPORT INFORMATION
  Report Type: Spontaneous
  Country: GB (occurrence: GB)
  Receive Date: 20250304
  Receipt Date: 20250304
  Transmission Date: 20250409
  Serious: Yes (Hospitalization)
  Sender: BAYER HEALTHCARE PHARMACEUTICALS INC.
  Company Number: GB-BAYER-2025A028732

PATIENT
  Sex: Male

DRUGS (2)
  1. VITRAKVI [Suspect]
     Active Substance: LAROTRECTINIB
     Indication: Thyroid cancer metastatic
     Dates: start: 202411
  2. VITRAKVI [Suspect]
     Active Substance: LAROTRECTINIB
     Indication: NTRK gene fusion cancer

REACTIONS (1)
  - Orthostatic hypotension [None]
